FAERS Safety Report 14782800 (Version 1)
Quarter: 2018Q2

REPORT INFORMATION
  Report Type: Spontaneous
  Country: US (occurrence: US)
  Receive Date: 20180420
  Receipt Date: 20180420
  Transmission Date: 20180711
  Serious: No
  Sender: FDA-Public Use
  Company Number: US-SHIRE-US201814867

PATIENT
  Age: 61 Year
  Sex: Female

DRUGS (1)
  1. XIIDRA [Suspect]
     Active Substance: LIFITEGRAST
     Indication: DRY EYE
     Dosage: 5 %, 4X/DAY:QID
     Route: 047
     Dates: start: 20180415, end: 20180415

REACTIONS (4)
  - Overdose [Unknown]
  - Dysgeusia [Not Recovered/Not Resolved]
  - Vision blurred [Not Recovered/Not Resolved]
  - Blood pressure increased [Not Recovered/Not Resolved]

NARRATIVE: CASE EVENT DATE: 20180415
